FAERS Safety Report 19880935 (Version 2)
Quarter: 2021Q4

REPORT INFORMATION
  Report Type: Spontaneous
  Country: PL (occurrence: PL)
  Receive Date: 20210925
  Receipt Date: 20211002
  Transmission Date: 20220303
  Serious: No
  Sender: FDA-Public Use
  Company Number: PL-LUPIN PHARMACEUTICALS INC.-2021-18000

PATIENT
  Age: 68 Year
  Sex: Female

DRUGS (3)
  1. CELECOXIB [Interacting]
     Active Substance: CELECOXIB
     Indication: Rotator cuff syndrome
     Dosage: UNK
     Route: 065
  2. DOXEPIN [Interacting]
     Active Substance: DOXEPIN
     Indication: Insomnia
     Dosage: UNK
     Route: 065
  3. OMEPRAZOLE [Interacting]
     Active Substance: OMEPRAZOLE
     Indication: Dyspepsia
     Dosage: UNK
     Route: 065

REACTIONS (3)
  - Dizziness [Recovering/Resolving]
  - Drug interaction [Unknown]
  - Contraindicated product administered [Unknown]
